FAERS Safety Report 8261274 (Version 6)
Quarter: 2013Q4

REPORT INFORMATION
  Report Type: Spontaneous
  Country: CA (occurrence: CA)
  Receive Date: 20111123
  Receipt Date: 20131011
  Transmission Date: 20140711
  Serious: Yes (Other)
  Sender: FDA-Public Use
  Company Number: CA-ROCHE-1013609

PATIENT
  Age: 61 Year
  Sex: Female

DRUGS (12)
  1. XOLAIR [Suspect]
     Indication: ASTHMA
     Route: 058
     Dates: start: 20090422
  2. XOLAIR [Suspect]
     Route: 065
     Dates: start: 20131007
  3. OMEPRAZOLE [Concomitant]
  4. ALENDRONATE SODIUM [Concomitant]
  5. TRAZODONE [Concomitant]
  6. SINGULAIR [Concomitant]
  7. SALBUTAMOL [Concomitant]
  8. ALVESCO [Concomitant]
  9. ADVAIR [Concomitant]
  10. CIPRALEX [Concomitant]
  11. THEOPHYLLINE [Concomitant]
  12. FLUTICASONE [Concomitant]

REACTIONS (9)
  - Oedema [Not Recovered/Not Resolved]
  - Ligament sprain [Unknown]
  - Skin discolouration [Recovering/Resolving]
  - Swelling [Recovering/Resolving]
  - Herpes zoster [Unknown]
  - Foot fracture [Recovering/Resolving]
  - Pain in extremity [Unknown]
  - Muscle spasms [Unknown]
  - Blood potassium decreased [Unknown]
